FAERS Safety Report 11981185 (Version 3)
Quarter: 2016Q1

REPORT INFORMATION
  Report Type: Report from Study
  Country: JP (occurrence: JP)
  Receive Date: 20160129
  Receipt Date: 20160223
  Transmission Date: 20160526
  Serious: Yes (Hospitalization, Other)
  Sender: FDA-Public Use
  Company Number: JP-TAKEDA-2015TUS004975

PATIENT
  Age: 81 Year
  Sex: Male
  Weight: 68.5 kg

DRUGS (18)
  1. FEBUXOSTAT. [Suspect]
     Active Substance: FEBUXOSTAT
     Indication: GOUT
     Dosage: 20 MG, QD
     Route: 048
     Dates: start: 20130115
  2. BAYASPIRIN [Concomitant]
     Active Substance: ASPIRIN
     Indication: EMBOLISM
     Dosage: 100 MG, QD
     Route: 048
     Dates: start: 201011
  3. LASIX [Concomitant]
     Active Substance: FUROSEMIDE
     Indication: HYPERTENSION
     Dosage: 40 MG, QD
     Route: 048
  4. MICARDIS [Concomitant]
     Active Substance: TELMISARTAN
     Indication: HYPERTENSION
     Dosage: 40 MG, QD
     Route: 048
     Dates: start: 20121120
  5. WARFARIN [Suspect]
     Active Substance: WARFARIN
     Indication: ATRIAL FLUTTER
     Dosage: 3 MG, QD
     Route: 048
     Dates: start: 201011, end: 20140408
  6. WARFARIN POTASSIUM [Concomitant]
     Active Substance: WARFARIN POTASSIUM
     Dosage: 0.25 MG, QD
     Route: 048
     Dates: start: 20150121
  7. ULCERLMIN [Concomitant]
     Active Substance: SUCRALFATE
     Indication: CHRONIC GASTRITIS
     Dosage: 1 G, BID
     Route: 048
  8. OPALMON [Concomitant]
     Active Substance: LIMAPROST
     Indication: LUMBAR SPINAL STENOSIS
     Dosage: 5 ?G, TID
     Route: 048
     Dates: start: 20120703
  9. WARFARIN [Suspect]
     Active Substance: WARFARIN
     Dosage: 2 MG, QD
     Route: 048
     Dates: start: 20140409, end: 20140609
  10. WARFARIN [Suspect]
     Active Substance: WARFARIN
     Dosage: 3 MG, QD
     Route: 048
     Dates: start: 20140610
  11. WARFARIN POTASSIUM [Concomitant]
     Active Substance: WARFARIN POTASSIUM
     Indication: ATRIAL FLUTTER
     Route: 048
     Dates: start: 20140409, end: 20140609
  12. ADALAT CC [Concomitant]
     Active Substance: NIFEDIPINE
     Indication: HYPERTENSION
     Dosage: 20 MG, QD
     Route: 048
  13. LASIX [Concomitant]
     Active Substance: FUROSEMIDE
     Dosage: 10 MG, QD
     Route: 048
     Dates: start: 20150121, end: 20151015
  14. LASIX [Concomitant]
     Active Substance: FUROSEMIDE
     Dosage: 20 MG, QD
     Route: 048
     Dates: start: 20151016
  15. DIART [Concomitant]
     Active Substance: AZOSEMIDE
     Indication: CARDIAC FAILURE CONGESTIVE
     Dosage: 30 MG, QD
     Route: 048
     Dates: start: 20140312
  16. LIVALO [Concomitant]
     Active Substance: PITAVASTATIN CALCIUM
     Indication: HYPERCHOLESTEROLAEMIA
     Dosage: 1 MG, QD
     Route: 048
     Dates: start: 20141112
  17. ALDACTONE A [Concomitant]
     Active Substance: SPIRONOLACTONE
     Indication: HYPERTENSION
     Dosage: 25 MG, QD
     Route: 048
     Dates: start: 20101202
  18. LASIX [Concomitant]
     Active Substance: FUROSEMIDE
     Indication: CARDIAC FAILURE CONGESTIVE
     Dosage: 10 MG, QD
     Route: 048
     Dates: start: 20140212, end: 20140509

REACTIONS (6)
  - Blood uric acid increased [Not Recovered/Not Resolved]
  - Prothrombin time ratio increased [Recovering/Resolving]
  - Blood cholesterol increased [Recovering/Resolving]
  - Gastric cancer [Not Recovered/Not Resolved]
  - Cardiothoracic ratio increased [Recovering/Resolving]
  - Weight increased [Not Recovered/Not Resolved]

NARRATIVE: CASE EVENT DATE: 20140212
